FAERS Safety Report 15220265 (Version 1)
Quarter: 2018Q3

REPORT INFORMATION
  Report Type: Spontaneous
  Country: ES (occurrence: ES)
  Receive Date: 20180731
  Receipt Date: 20180731
  Transmission Date: 20181010
  Serious: Yes (Death, Other)
  Sender: FDA-Public Use
  Company Number: ES-AXELLIA-001813

PATIENT
  Age: 66 Year
  Sex: Male

DRUGS (2)
  1. DAPTOMYCIN. [Suspect]
     Active Substance: DAPTOMYCIN
     Indication: PRODUCT USED FOR UNKNOWN INDICATION
     Dosage: 700 MG DAY
     Route: 042
     Dates: start: 20170914, end: 201709
  2. SPIRONOLACTONE. [Concomitant]
     Active Substance: SPIRONOLACTONE
     Dosage: 100 MG DAY
     Route: 048
     Dates: start: 20170911, end: 20170919

REACTIONS (2)
  - Acute kidney injury [Fatal]
  - Myopathy [Unknown]

NARRATIVE: CASE EVENT DATE: 201709
